FAERS Safety Report 9206364 (Version 2)
Quarter: 2013Q2

REPORT INFORMATION
  Report Type: Report from Study
  Country: US (occurrence: US)
  Receive Date: 20130403
  Receipt Date: 20130412
  Transmission Date: 20140414
  Serious: Yes (Hospitalization)
  Sender: FDA-Public Use
  Company Number: US-VERTEX PHARMACEUTICALS INC.-2013-004349

PATIENT
  Age: 11 Year
  Sex: Female

DRUGS (12)
  1. VX-770 [Suspect]
     Indication: CYSTIC FIBROSIS
     Dosage: 150 MG, BID
     Route: 048
     Dates: start: 20120310, end: 201302
  2. VX-770 [Suspect]
     Dosage: 150 MG, QD
     Route: 048
     Dates: start: 201302
  3. URSODIOL [Concomitant]
     Dosage: 300 MG, UNK
  4. DORNASE ALFA [Concomitant]
     Dosage: 2.5 MG/2.5ML
  5. CHOLECALCIFEROL [Concomitant]
     Dosage: QPM
     Route: 048
  6. FLUTICASONE [Concomitant]
     Dosage: 2 PUFFS INHALATION, BID
  7. LANSOPRAZOLE [Concomitant]
     Dosage: 30 MG, QD
     Route: 048
  8. NACL [Concomitant]
     Dosage: 0.28 GRAM 4 ML NEBULIZED
  9. ALBUTEROL [Concomitant]
     Dosage: 4 PUFF INHALATION, BID
  10. AZITHROMYCIN [Concomitant]
     Dosage: 250 MG, UNK
     Route: 048
  11. PANCRELIPASE [Concomitant]
     Dosage: 3-4 CAPS WITH MEALS, 2-3 CAPS SNACKS. 4 BEFORE AND AFTER GT INFUSION
  12. TOBRAMYCIN [Concomitant]
     Dosage: BID EVERY 28 DAYS

REACTIONS (4)
  - Influenza [Recovered/Resolved]
  - Pulmonary function test decreased [Recovered/Resolved]
  - Weight decreased [Recovered/Resolved]
  - Hepatic enzyme increased [Recovered/Resolved]
